FAERS Safety Report 18332884 (Version 1)
Quarter: 2020Q4

REPORT INFORMATION
  Report Type: Spontaneous
  Country: CH (occurrence: CH)
  Receive Date: 20201001
  Receipt Date: 20201001
  Transmission Date: 20210113
  Serious: Yes (Hospitalization, Other)
  Sender: FDA-Public Use
  Company Number: CH-SUN PHARMACEUTICAL INDUSTRIES LTD-2020RR-262716

PATIENT
  Age: 43 Year
  Sex: Male

DRUGS (7)
  1. CYTARABINE. [Concomitant]
     Active Substance: CYTARABINE
     Dosage: SECOND CYCLE 1 G/M2 TWICE DAILY DAY 1-6
     Route: 065
  2. DAUNORUBICINE [Concomitant]
     Active Substance: DAUNORUBICIN
     Indication: NEOPLASM
     Dosage: 60 MG/M2 DAY 1,3 AND 5
     Route: 065
  3. CYCLOPHOSPHAMIDE. [Concomitant]
     Active Substance: CYCLOPHOSPHAMIDE
     Indication: NEOPLASM
     Dosage: UNK
     Route: 065
  4. CYCLOSPORINE. [Concomitant]
     Active Substance: CYCLOSPORINE
     Indication: IMMUNOSUPPRESSION
     Dosage: UNK
     Route: 065
  5. IMATINIB. [Suspect]
     Active Substance: IMATINIB MESYLATE
     Indication: NEOPLASM
     Dosage: 400 MILLIGRAM, DAILY
     Route: 065
  6. CYTARABINE. [Concomitant]
     Active Substance: CYTARABINE
     Indication: NEOPLASM
     Dosage: 2 CYCLES: FIRST CYCLE: CYTARABINE 200 MG/M2 DAY 1-7
     Route: 065
  7. IDARUBICINE [Concomitant]
     Active Substance: IDARUBICIN
     Indication: NEOPLASM
     Dosage: FIRST CYCLE: 12 MILLIGRAM/SQ. METER, DAY 1-3
     Route: 065

REACTIONS (1)
  - Progressive multifocal leukoencephalopathy [Recovering/Resolving]
